FAERS Safety Report 5320394-2 (Version None)
Quarter: 2007Q2

REPORT INFORMATION
  Report Type: 
  Country: None (occurrence: None)
  Receive Date: 20070509
  Receipt Date: 20070430
  Transmission Date: 20071010
  Serious: Yes (Other)
  Sender: FDA-Public Use
  Company Number: US-ASTRAZENECA-2007UW08512

PATIENT
  Age: 72 Year
  Sex: Female
  Weight: 97.5 kg

DRUGS (1)
  1. ARIMIDEX [Suspect]
     Indication: BREAST CANCER
     Route: 048

REACTIONS (6)
  - COUGH [None]
  - DRY EYE [None]
  - HOT FLUSH [None]
  - MENISCUS LESION [None]
  - NASAL DRYNESS [None]
  - TONGUE DRY [None]
